FAERS Safety Report 12668049 (Version 2)
Quarter: 2016Q4

REPORT INFORMATION
  Report Type: Report from Study
  Country: None (occurrence: US)
  Receive Date: 20160819
  Receipt Date: 20161012
  Transmission Date: 20170207
  Serious: Yes (Other)
  Sender: FDA-Public Use
  Company Number: US-ABBVIE-16K-163-1700393-00

PATIENT
  Sex: Female

DRUGS (1)
  1. HUMIRA [Suspect]
     Active Substance: ADALIMUMAB
     Indication: HIDRADENITIS
     Route: 058
     Dates: start: 201509, end: 201608

REACTIONS (16)
  - Renal failure [Recovering/Resolving]
  - Drug ineffective [Not Recovered/Not Resolved]
  - Red blood cell sedimentation rate increased [Unknown]
  - Wound [Not Recovered/Not Resolved]
  - Joint effusion [Not Recovered/Not Resolved]
  - Sleep disorder [Recovering/Resolving]
  - Swelling [Recovering/Resolving]
  - Hepatitis B [Unknown]
  - C-reactive protein increased [Unknown]
  - Continuous positive airway pressure [Unknown]
  - Fluid retention [Recovering/Resolving]
  - Oedema [Not Recovered/Not Resolved]
  - Protein urine present [Not Recovered/Not Resolved]
  - Blood urea increased [Unknown]
  - Blood urine present [Recovering/Resolving]
  - Breast ulceration [Unknown]

NARRATIVE: CASE EVENT DATE: 2015
